FAERS Safety Report 6659979-X (Version None)
Quarter: 2010Q1

REPORT INFORMATION
  Report Type: 
  Country: None (occurrence: None)
  Receive Date: 20100331
  Receipt Date: 20100329
  Transmission Date: 20100710
  Serious: Yes (Death)
  Sender: FDA-Public Use
  Company Number: US-BIOGENIDEC-2010BI009514

PATIENT
  Age: 57 Year
  Sex: Female

DRUGS (8)
  1. TYSABRI [Suspect]
     Indication: MULTIPLE SCLEROSIS
     Route: 042
     Dates: start: 20070913, end: 20100105
  2. NORCO [Concomitant]
     Indication: PAIN
     Route: 048
     Dates: start: 20081203, end: 20100226
  3. PROVIGIL [Concomitant]
     Indication: FATIGUE
     Route: 048
     Dates: start: 20081108, end: 20100226
  4. SYNTHROID [Concomitant]
     Indication: HYPOTHYROIDISM
     Route: 048
     Dates: start: 20080319, end: 20100226
  5. VOLTAREN [Concomitant]
     Indication: ARTHRALGIA
     Route: 061
     Dates: start: 20090227, end: 20100226
  6. IMITREX [Concomitant]
     Indication: HEADACHE
     Route: 048
     Dates: start: 20090323, end: 20100226
  7. CYMBALTA [Concomitant]
     Indication: DEPRESSION
     Route: 048
     Dates: start: 20090323, end: 20100226
  8. KEPPRA XR [Concomitant]
     Indication: CONVULSION
     Route: 048
     Dates: start: 20100202, end: 20100226

REACTIONS (3)
  - DEATH [None]
  - DRUG DOSE OMISSION [None]
  - SPINAL HAEMANGIOMA [None]
